FAERS Safety Report 14916277 (Version 1)
Quarter: 2018Q2

REPORT INFORMATION
  Report Type: Spontaneous
  Country: US (occurrence: US)
  Receive Date: 20180519
  Receipt Date: 20180519
  Transmission Date: 20180711
  Serious: No
  Sender: FDA-Public Use
  Company Number: US-JNJFOC-20180434809

PATIENT
  Sex: Male

DRUGS (2)
  1. MOTRIN [Suspect]
     Active Substance: IBUPROFEN
     Route: 065
  2. MOTRIN [Suspect]
     Active Substance: IBUPROFEN
     Indication: ABDOMINAL PAIN UPPER
     Route: 065

REACTIONS (6)
  - Product use in unapproved indication [Unknown]
  - Vomiting [Unknown]
  - Abdominal pain [Unknown]
  - Product formulation issue [Unknown]
  - Product physical issue [Unknown]
  - Muscle tightness [Unknown]
